FAERS Safety Report 9375542 (Version 1)
Quarter: 2013Q2

REPORT INFORMATION
  Report Type: Spontaneous
  Country: IL (occurrence: IL)
  Receive Date: 20130628
  Receipt Date: 20130628
  Transmission Date: 20140414
  Serious: Yes (Other)
  Sender: FDA-Public Use
  Company Number: IL-NAPPMUNDI-GBR-2013-0014093

PATIENT
  Age: 36 Year
  Sex: Male

DRUGS (7)
  1. BUTRANS TRANSDERMAL PATCH [Suspect]
     Indication: PROCEDURAL PAIN
     Dosage: 2 X 5 MCG PATCH, Q1H
     Route: 062
  2. BUTRANS TRANSDERMAL PATCH [Suspect]
     Dosage: 10 MCG, Q1H
     Route: 062
     Dates: start: 20130423, end: 20130530
  3. BUTRANS TRANSDERMAL PATCH [Suspect]
     Dosage: 5 MCG, Q1H
     Route: 062
     Dates: end: 20130530
  4. LYRICA [Concomitant]
     Dosage: 150 MG, DAILY
     Route: 048
     Dates: start: 20130430
  5. ACAMOL [Concomitant]
     Dosage: 500-1000 MG, DAILY
     Route: 048
     Dates: start: 20130524
  6. OPTALGIN [Concomitant]
     Dosage: 500-1000 MG, DAILY
     Route: 048
     Dates: start: 20130130
  7. TRAMADEX [Concomitant]
     Dosage: 50-100 MG, DAILY
     Route: 048
     Dates: start: 20130525

REACTIONS (5)
  - Skin discolouration [Recovered/Resolved]
  - Application site pruritus [Recovered/Resolved]
  - Application site erythema [Recovered/Resolved]
  - Dry skin [Recovered/Resolved]
  - Drug ineffective [Unknown]
